FAERS Safety Report 19990275 (Version 1)
Quarter: 2021Q4

REPORT INFORMATION
  Report Type: Spontaneous
  Country: RU (occurrence: RU)
  Receive Date: 20211025
  Receipt Date: 20211025
  Transmission Date: 20220303
  Serious: Yes (Other)
  Sender: FDA-Public Use
  Company Number: RU-ROCHE-2937239

PATIENT
  Age: 58 Year
  Sex: Female

DRUGS (3)
  1. KADCYLA [Suspect]
     Active Substance: ADO-TRASTUZUMAB EMTANSINE
     Indication: Product used for unknown indication
     Route: 065
  2. HERCEPTIN [Suspect]
     Active Substance: TRASTUZUMAB
     Indication: Product used for unknown indication
     Route: 065
  3. PERJETA [Suspect]
     Active Substance: PERTUZUMAB
     Indication: Product used for unknown indication
     Route: 065

REACTIONS (9)
  - Metastases to meninges [Unknown]
  - Intracranial mass [Unknown]
  - Haemangioma [Unknown]
  - Neutropenia [Unknown]
  - Ejection fraction abnormal [Unknown]
  - Mitral valve prolapse [Unknown]
  - Leukopenia [Unknown]
  - Discomfort [Unknown]
  - Breast pain [Unknown]
